FAERS Safety Report 22391107 (Version 1)
Quarter: 2023Q2

REPORT INFORMATION
  Report Type: Spontaneous
  Country: US (occurrence: US)
  Receive Date: 20230601
  Receipt Date: 20230601
  Transmission Date: 20230721
  Serious: Yes (Other)
  Sender: FDA-Public Use
  Company Number: US-JNJFOC-20230554003

PATIENT
  Age: 63 Year

DRUGS (1)
  1. VELETRI [Suspect]
     Active Substance: EPOPROSTENOL
     Indication: Acute respiratory distress syndrome
     Route: 055

REACTIONS (3)
  - Bronchospasm [Unknown]
  - Reaction to excipient [Unknown]
  - Off label use [Unknown]
